FAERS Safety Report 10428616 (Version 1)
Quarter: 2014Q3

REPORT INFORMATION
  Report Type: Spontaneous
  Country: NO (occurrence: None)
  Receive Date: 20140829
  Receipt Date: 20140829
  Transmission Date: 20150326
  Serious: Yes (Hospitalization)
  Sender: FDA-Public Use
  Company Number: NO-AIKEM-000691

PATIENT
  Sex: Female
  Weight: 80 kg

DRUGS (5)
  1. LAMOTRIGINE (LAMOTRIGINE) [Suspect]
     Active Substance: LAMOTRIGINE
     Indication: BIPOLAR DISORDER
     Dosage: 400.00000000MG?
  2. CARBAMAZEPINE. [Concomitant]
     Active Substance: CARBAMAZEPINE
  3. VITAMIN B COMPLEX [Concomitant]
     Active Substance: CYANOCOBALAMIN\DEXPANTHENOL\NIACINAMIDE\PYRIDOXINE HYDROCHLORIDE\RIBOFLAVIN 5^-PHOSPHATE SODIUM\THIAMINE HYDROCHLORIDE\VITAMIN B COMPLEX
  4. KETAMINE (KETAMINE) [Suspect]
     Active Substance: KETAMINE
     Indication: SEDATION
  5. THIAMINE [Concomitant]
     Active Substance: THIAMINE

REACTIONS (8)
  - Drug ineffective [None]
  - Nystagmus [None]
  - Agitation [None]
  - Euphoric mood [None]
  - Tachycardia [None]
  - Epilepsy [None]
  - Ataxia [None]
  - Drug interaction [None]
